FAERS Safety Report 13213898 (Version 2)
Quarter: 2018Q1

REPORT INFORMATION
  Report Type: Spontaneous
  Country: US (occurrence: US)
  Receive Date: 20170209
  Receipt Date: 20180116
  Transmission Date: 20180508
  Serious: No
  Sender: FDA-Public Use
  Company Number: US-ALLERGAN-1666722US

PATIENT
  Age: 74 Year
  Sex: Female
  Weight: 45.81 kg

DRUGS (19)
  1. BOTOX [Suspect]
     Active Substance: ONABOTULINUMTOXINA
     Dosage: UNK, SINGLE
     Route: 030
     Dates: start: 2013, end: 2013
  2. IMITREX [Concomitant]
     Active Substance: SUMATRIPTAN SUCCINATE
     Indication: MIGRAINE
  3. DEXILANT [Concomitant]
     Active Substance: DEXLANSOPRAZOLE
     Indication: GASTROOESOPHAGEAL REFLUX DISEASE
     Dosage: UNK
     Route: 048
  4. BOTOX [Suspect]
     Active Substance: ONABOTULINUMTOXINA
     Dosage: UNK, SINGLE
     Route: 030
     Dates: start: 2015, end: 2015
  5. BOTOX [Suspect]
     Active Substance: ONABOTULINUMTOXINA
     Dosage: UNK, SINGLE
     Route: 030
     Dates: start: 20160822, end: 20160822
  6. ADVIL [Concomitant]
     Active Substance: IBUPROFEN
     Indication: PRODUCT USED FOR UNKNOWN INDICATION
     Dosage: UNK
     Route: 048
  7. ZOMIG [Concomitant]
     Active Substance: ZOLMITRIPTAN
     Indication: MIGRAINE
     Dosage: 5 MG, UNK
     Route: 048
  8. IBUPROFEN. [Concomitant]
     Active Substance: IBUPROFEN
     Indication: MIGRAINE
     Dosage: UNK UNK, PRN
     Route: 048
  9. BOTOX [Suspect]
     Active Substance: ONABOTULINUMTOXINA
     Dosage: UNK, SINGLE
     Route: 030
     Dates: start: 20161022, end: 20161022
  10. CAMBIA [Concomitant]
     Active Substance: DICLOFENAC POTASSIUM
     Indication: MIGRAINE
     Dosage: UNK UNK, PRN
     Route: 048
  11. DEPAKOTE [Concomitant]
     Active Substance: DIVALPROEX SODIUM
     Indication: MIGRAINE
  12. BOTOX [Suspect]
     Active Substance: ONABOTULINUMTOXINA
     Dosage: UNK, SINGLE
     Route: 030
     Dates: start: 20161123, end: 20161123
  13. TYLENOL [Concomitant]
     Active Substance: ACETAMINOPHEN
     Indication: MIGRAINE
     Dosage: UNK, PRN
     Route: 048
  14. BYSTOLIC [Concomitant]
     Active Substance: NEBIVOLOL HYDROCHLORIDE
     Indication: MIGRAINE
     Dosage: UNK UNK, QD
     Route: 048
  15. RELPAX [Concomitant]
     Active Substance: ELETRIPTAN HYDROBROMIDE
     Indication: MIGRAINE
  16. LIBRIUM [Concomitant]
     Active Substance: CHLORDIAZEPOXIDE HYDROCHLORIDE
     Indication: PRODUCT USED FOR UNKNOWN INDICATION
     Dosage: UNK
  17. TRAMADOL. [Concomitant]
     Active Substance: TRAMADOL
     Indication: MIGRAINE
     Dosage: UNK UNK, PRN
     Route: 048
  18. BOTOX [Suspect]
     Active Substance: ONABOTULINUMTOXINA
     Indication: MIGRAINE
     Dosage: UNK, SINGLE
     Route: 030
  19. AMITRIPTYLINE [Concomitant]
     Active Substance: AMITRIPTYLINE
     Indication: PRODUCT USED FOR UNKNOWN INDICATION

REACTIONS (22)
  - Vasodilatation [Recovered/Resolved]
  - Drug ineffective [Unknown]
  - Insomnia [Recovered/Resolved]
  - Therapeutic response unexpected [Unknown]
  - Dysphonia [Recovered/Resolved]
  - Lactose intolerance [Not Recovered/Not Resolved]
  - Constipation [Not Recovered/Not Resolved]
  - Throat tightness [Unknown]
  - Eyelid ptosis [Recovered/Resolved]
  - Thinking abnormal [Recovered/Resolved]
  - Muscular weakness [Recovered/Resolved]
  - Ophthalmoplegia [Recovered/Resolved]
  - Skin disorder [Recovered/Resolved]
  - Head discomfort [Recovered/Resolved]
  - Headache [Not Recovered/Not Resolved]
  - Eye discharge [Recovered/Resolved]
  - Sinusitis [Recovered/Resolved]
  - Irritable bowel syndrome [Recovered/Resolved]
  - Feeling abnormal [Recovered/Resolved]
  - Throat irritation [Recovered/Resolved]
  - Migraine [Not Recovered/Not Resolved]
  - Malaise [Unknown]

NARRATIVE: CASE EVENT DATE: 20160823
